FAERS Safety Report 8609947-3 (Version None)
Quarter: 2012Q3

REPORT INFORMATION
  Report Type: 
  Country: None (occurrence: None)
  Receive Date: 20120821
  Receipt Date: 20111206
  Transmission Date: 20120928
  Serious: Yes (Other)
  Sender: FDA-Public Use
  Company Number: PHEH2011US011058

PATIENT
  Sex: Female

DRUGS (3)
  1. VIVELLE-DOT [Suspect]
     Dosage: 0.1 MG, BID
     Route: 062
     Dates: start: 20110821
  2. VIVELLE-DOT [Suspect]
     Dosage: 0.1 MG, BID
     Route: 062
     Dates: start: 20110827
  3. VIVELLE-DOT [Suspect]
     Indication: HORMONE REPLACEMENT THERAPY
     Dosage: 0.1 MG, BID
     Route: 062
     Dates: start: 20090101

REACTIONS (11)
  - RASH [None]
  - ANXIETY [None]
  - POOR QUALITY SLEEP [None]
  - BREAST SWELLING [None]
  - HOT FLUSH [None]
  - BREAST PAIN [None]
  - MASTITIS [None]
  - BREAST MASS [None]
  - APPLICATION SITE REACTION [None]
  - BREAST INFLAMMATION [None]
  - DERMATITIS [None]
